FAERS Safety Report 24103275 (Version 1)
Quarter: 2024Q3

REPORT INFORMATION
  Report Type: Spontaneous
  Country: GB (occurrence: GB)
  Receive Date: 20240717
  Receipt Date: 20240717
  Transmission Date: 20241017
  Serious: Yes (Other)
  Sender: AUROBINDO
  Company Number: GB-MHRA-MED-202407072116268200-GDLRZ

PATIENT
  Sex: Female
  Weight: 73 kg

DRUGS (1)
  1. SERTRALINE [Suspect]
     Active Substance: SERTRALINE HYDROCHLORIDE
     Indication: Depression
     Dosage: 50 MILLIGRAM, AT BED TIME
     Route: 065

REACTIONS (2)
  - Gastritis [Not Recovered/Not Resolved]
  - Weight increased [Not Recovered/Not Resolved]
